FAERS Safety Report 21382740 (Version 1)
Quarter: 2022Q3

REPORT INFORMATION
  Report Type: Spontaneous
  Country: CA (occurrence: CA)
  Receive Date: 20220927
  Receipt Date: 20220927
  Transmission Date: 20221027
  Serious: Yes (Hospitalization, Other)
  Sender: FDA-Public Use
  Company Number: CA-AstraZeneca-2020SF39429

PATIENT
  Age: 73 Year
  Sex: Female

DRUGS (6)
  1. ALVESCO [Suspect]
     Active Substance: CICLESONIDE
     Indication: Product used for unknown indication
     Dosage: 2 PUFFS, TWO TIMES A DAY
     Route: 055
  2. ALVESCO [Suspect]
     Active Substance: CICLESONIDE
     Indication: Asthma
  3. THEO-DUR [Suspect]
     Active Substance: THEOPHYLLINE ANHYDROUS
     Indication: Product used for unknown indication
     Dosage: 1 DF, TWO TIMES A DAY 100 MG
     Route: 065
  4. VILANTEROL TRIFENATATE [Suspect]
     Active Substance: VILANTEROL TRIFENATATE
     Indication: Product used for unknown indication
     Dosage: 1 PUFF DAILY, 200/25 MCG
     Route: 055
  5. TIOTROPIUM [Suspect]
     Active Substance: TIOTROPIUM
     Indication: Product used for unknown indication
     Dosage: 2 PUFFS, TWO TIMES A DAY
     Route: 055
  6. VENTOLIN [Suspect]
     Active Substance: ALBUTEROL SULFATE
     Indication: Product used for unknown indication
     Dosage: 4 PUFFS DAILY, 4 TIMES A DAY
     Route: 055

REACTIONS (6)
  - Dyspnoea [Unknown]
  - Pneumonia [Unknown]
  - Chronic obstructive pulmonary disease [Unknown]
  - Loss of personal independence in daily activities [Unknown]
  - Wheezing [Unknown]
  - Asthma [Unknown]
